FAERS Safety Report 9106646 (Version 1)
Quarter: 2013Q1

REPORT INFORMATION
  Report Type: Spontaneous
  Country: CN (occurrence: CN)
  Receive Date: 20130222
  Receipt Date: 20130222
  Transmission Date: 20140127
  Serious: Yes (Other)
  Sender: FDA-Public Use
  Company Number: PHHY2012CN127626

PATIENT
  Age: 67 Year
  Sex: Female
  Weight: 53 kg

DRUGS (2)
  1. LESCOL [Suspect]
     Indication: DIABETES MELLITUS
     Dosage: 40 MG, QD
     Route: 048
     Dates: start: 20110606, end: 20110626
  2. CALCIUM DOBESILATE [Suspect]
     Route: 048

REACTIONS (5)
  - Erythema multiforme [Recovering/Resolving]
  - Pruritus [Recovering/Resolving]
  - Lip oedema [Recovering/Resolving]
  - Eyelid oedema [Recovering/Resolving]
  - Face oedema [Recovering/Resolving]
